FAERS Safety Report 5634383-1 (Version None)
Quarter: 2008Q1

REPORT INFORMATION
  Report Type: 
  Country: None (occurrence: None)
  Receive Date: 20080222
  Receipt Date: 20080214
  Transmission Date: 20080703
  Serious: Yes (Other)
  Sender: FDA-Public Use
  Company Number: US-JNJFOC-20080203658

PATIENT
  Sex: Female
  Weight: 92.99 kg

DRUGS (3)
  1. FENTANYL TRANSDERMAL SYSTEM [Suspect]
     Dosage: 1X 75UG/HR PATCH PLUS 1X 25UG/HR PATCH
     Route: 062
  2. FENTANYL TRANSDERMAL SYSTEM [Suspect]
     Indication: PAIN
     Dosage: 2X 75UG/HR PATCHES
     Route: 062
  3. SEROQUEL [Concomitant]
     Indication: INSOMNIA
     Dosage: DOSAGE: ^25^, NIGHTLY
     Route: 048

REACTIONS (7)
  - CHEST PAIN [None]
  - DRUG DOSE OMISSION [None]
  - HYPOVENTILATION [None]
  - INCOHERENT [None]
  - INCORRECT DOSE ADMINISTERED [None]
  - MUSCULOSKELETAL STIFFNESS [None]
  - NECK PAIN [None]
